FAERS Safety Report 23092292 (Version 4)
Quarter: 2024Q4

REPORT INFORMATION
  Report Type: Spontaneous
  Country: US (occurrence: US)
  Receive Date: 20231021
  Receipt Date: 20241110
  Transmission Date: 20250114
  Serious: No
  Sender: SANOFI AVENTIS
  Company Number: US-SA-SAC20231016001006

PATIENT
  Age: 52 Year
  Sex: Female

DRUGS (2)
  1. DUPIXENT [Suspect]
     Active Substance: DUPILUMAB
     Indication: Transient acantholytic dermatosis
     Dosage: 600 MG, 1X
     Route: 058
     Dates: start: 20230901, end: 20230901
  2. DUPIXENT [Suspect]
     Active Substance: DUPILUMAB
     Indication: Eczema
     Dosage: 300 MG, QOW
     Route: 058
     Dates: start: 20230915

REACTIONS (14)
  - Injection site urticaria [Recovered/Resolved]
  - Pyrexia [Unknown]
  - Nasal congestion [Unknown]
  - Productive cough [Recovering/Resolving]
  - Injection site erythema [Recovered/Resolved]
  - Injection site pain [Unknown]
  - Eczema [Not Recovered/Not Resolved]
  - Rash [Recovering/Resolving]
  - Rash pruritic [Unknown]
  - Therapeutic response shortened [Unknown]
  - Injection site bruising [Unknown]
  - Accidental exposure to product [Unknown]
  - Exposure via skin contact [Unknown]
  - Product use in unapproved indication [Unknown]

NARRATIVE: CASE EVENT DATE: 20230101
